FAERS Safety Report 5833129-1 (Version None)
Quarter: 2008Q3

REPORT INFORMATION
  Report Type: 
  Country: None (occurrence: None)
  Receive Date: 20080731
  Receipt Date: 20080716
  Transmission Date: 20090109
  Serious: Yes (Hospitalization)
  Sender: FDA-Public Use
  Company Number: 2008AL004458

PATIENT
  Age: 69 Year
  Sex: Male
  Weight: 64.8644 kg

DRUGS (1)
  1. DIGOXIN [Suspect]
     Indication: CARDIAC DISORDER
     Dosage: DAILY, PO
     Route: 048
     Dates: start: 20080101

REACTIONS (3)
  - DIARRHOEA [None]
  - HYPOTENSION [None]
  - PNEUMONIA [None]
